FAERS Safety Report 11045524 (Version 1)
Quarter: 2015Q2

REPORT INFORMATION
  Report Type: Spontaneous
  Country: US (occurrence: US)
  Receive Date: 20150417
  Receipt Date: 20150417
  Transmission Date: 20150821
  Serious: Yes (Hospitalization)
  Sender: FDA-Public Use
  Company Number: US-ASTRAZENECA-2015SE35090

PATIENT

DRUGS (11)
  1. IMADURE [Concomitant]
  2. ASPIRIN. [Concomitant]
     Active Substance: ASPIRIN
  3. METFORMIN [Concomitant]
     Active Substance: METFORMIN HYDROCHLORIDE
  4. BRILINTA [Suspect]
     Active Substance: TICAGRELOR
     Indication: CORONARY ARTERY DISEASE
     Route: 048
     Dates: end: 20150411
  5. NORVASC [Concomitant]
     Active Substance: AMLODIPINE BESYLATE
  6. LISINOPRIL. [Suspect]
     Active Substance: LISINOPRIL
     Route: 048
  7. AMARYL [Concomitant]
     Active Substance: GLIMEPIRIDE
  8. TENORMIN [Suspect]
     Active Substance: ATENOLOL
     Route: 048
  9. CATAPRES [Concomitant]
     Active Substance: CLONIDINE HYDROCHLORIDE
  10. CATAPRES [Concomitant]
     Active Substance: CLONIDINE HYDROCHLORIDE
  11. NITROSTAT [Concomitant]
     Active Substance: NITROGLYCERIN
     Dosage: AS REQUIRED

REACTIONS (3)
  - Chest pain [Unknown]
  - Product use issue [Unknown]
  - Gastrointestinal haemorrhage [Unknown]
